FAERS Safety Report 13741730 (Version 1)
Quarter: 2017Q3

REPORT INFORMATION
  Report Type: Spontaneous
  Country: FR (occurrence: FR)
  Receive Date: 20170711
  Receipt Date: 20170711
  Transmission Date: 20171127
  Serious: Yes (Hospitalization)
  Sender: FDA-Public Use
  Company Number: FR-PFIZER INC-2017291604

PATIENT
  Age: 39 Year
  Sex: Female

DRUGS (2)
  1. FUCIDINE /00065701/ [Suspect]
     Active Substance: FUSIDIC ACID
     Indication: FUNGAL INFECTION
     Dosage: 2 DF, 3X/DAY
     Route: 048
     Dates: start: 20160912, end: 20160914
  2. TRIFLUCAN [Suspect]
     Active Substance: FLUCONAZOLE
     Indication: FUNGAL INFECTION
     Dosage: 100 MG, 1X/DAY
     Route: 048
     Dates: start: 20160912, end: 20160914

REACTIONS (1)
  - Drug reaction with eosinophilia and systemic symptoms [Recovered/Resolved]

NARRATIVE: CASE EVENT DATE: 20160913
